FAERS Safety Report 22385864 (Version 13)
Quarter: 2025Q2

REPORT INFORMATION
  Report Type: Spontaneous
  Country: US (occurrence: US)
  Receive Date: 20230530
  Receipt Date: 20250528
  Transmission Date: 20250717
  Serious: Yes (Other)
  Sender: PFIZER
  Company Number: US-PFIZER INC-PV202300093320

PATIENT
  Age: 48 Year
  Sex: Female

DRUGS (4)
  1. IBRANCE [Suspect]
     Active Substance: PALBOCICLIB
     Indication: Breast cancer female
     Dates: start: 20230524
  2. ELIQUIS [Suspect]
     Active Substance: APIXABAN
     Indication: Deep vein thrombosis
     Dosage: 5 MG, 2X/DAY
  3. ELIQUIS [Suspect]
     Active Substance: APIXABAN
     Indication: Lymphoedema
  4. LETROZOLE [Concomitant]
     Active Substance: LETROZOLE

REACTIONS (21)
  - Thrombosis [Unknown]
  - Hypertension [Unknown]
  - Deep vein thrombosis [Unknown]
  - Vaginal haemorrhage [Unknown]
  - Fatigue [Unknown]
  - Vomiting [Unknown]
  - Hyperaesthesia [Unknown]
  - Diarrhoea [Unknown]
  - Alopecia [Unknown]
  - Skin mass [Unknown]
  - Vascular pain [Unknown]
  - Bone pain [Unknown]
  - Musculoskeletal stiffness [Unknown]
  - Euphoric mood [Unknown]
  - Memory impairment [Unknown]
  - Rash macular [Unknown]
  - Lymphoedema [Unknown]
  - Rash pruritic [Unknown]
  - Rash [Unknown]
  - Nausea [Unknown]
  - Product dose omission in error [Unknown]

NARRATIVE: CASE EVENT DATE: 20230501
